FAERS Safety Report 8814202 (Version 2)
Quarter: 2013Q1

REPORT INFORMATION
  Report Type: Spontaneous
  Country: US (occurrence: US)
  Receive Date: 20120928
  Receipt Date: 20130211
  Transmission Date: 20140127
  Serious: No
  Sender: FDA-Public Use
  Company Number: US-009507513-1209USA009310

PATIENT
  Age: 43 Year
  Sex: Male

DRUGS (5)
  1. JANUMET [Suspect]
     Indication: DIABETES MELLITUS
     Dosage: 50/1000 MG, BID
     Route: 048
     Dates: start: 201207, end: 201207
  2. TRAZODONE HYDROCHLORIDE [Concomitant]
  3. CHLORPHEN (CHLORAMPHENICOL) [Concomitant]
  4. GLIPIZIDE [Concomitant]
  5. FUROSEMIDE [Concomitant]

REACTIONS (4)
  - Dizziness [Recovering/Resolving]
  - Vomiting [Recovering/Resolving]
  - Nausea [Recovering/Resolving]
  - Diarrhoea [Recovering/Resolving]
